FAERS Safety Report 8421970-0 (Version None)
Quarter: 2012Q2

REPORT INFORMATION
  Report Type: 
  Country: None (occurrence: None)
  Receive Date: 20120608
  Receipt Date: 20120605
  Transmission Date: 20120825
  Serious: Yes (Other)
  Sender: FDA-Public Use
  Company Number: US-PFIZER INC-2012098513

PATIENT
  Sex: Female
  Weight: 72.562 kg

DRUGS (2)
  1. PREPARATION H HEMORRHOIDAL SUPPOSITORIES [Suspect]
     Indication: HAEMORRHOIDS
     Dosage: UNK, 3X/DAY
     Route: 054
     Dates: start: 20120419, end: 20120420
  2. ESTROGENS [Concomitant]
     Dosage: UNK

REACTIONS (8)
  - NAUSEA [None]
  - FEELING ABNORMAL [None]
  - HYPERSENSITIVITY [None]
  - DRUG INTOLERANCE [None]
  - HAEMORRHOIDAL HAEMORRHAGE [None]
  - DRUG INEFFECTIVE [None]
  - VOMITING [None]
  - PROCTITIS [None]
